FAERS Safety Report 5805355-9 (Version None)
Quarter: 2008Q3

REPORT INFORMATION
  Report Type: 
  Country: None (occurrence: None)
  Receive Date: 20080702
  Receipt Date: 20070618
  Transmission Date: 20090109
  Serious: Yes (Other)
  Sender: FDA-Public Use
  Company Number: HQWYE690219JUN07

PATIENT
  Age: 69 Year
  Sex: Female
  Weight: 71.28 kg

DRUGS (4)
  1. ADVIL [Suspect]
     Indication: BACK PAIN
     Dosage: TWO TABLETS AS NEEDED, ORAL
     Route: 048
     Dates: start: 20040101, end: 20070618
  2. ADVIL [Suspect]
     Indication: PAIN IN EXTREMITY
     Dosage: TWO TABLETS AS NEEDED, ORAL
     Route: 048
     Dates: start: 20040101, end: 20070618
  3. LEVOTHYROXINE SODIUM [Concomitant]
  4. INSULIN (INSULIN) [Concomitant]

REACTIONS (1)
  - BLOOD GLUCOSE INCREASED [None]
